FAERS Safety Report 4455239-6 (Version None)
Quarter: 2004Q3

REPORT INFORMATION
  Report Type: 
  Country: None (occurrence: None)
  Receive Date: 20040921
  Receipt Date: 20040623
  Transmission Date: 20050211
  Serious: Yes (Hospitalization, Other)
  Sender: FDA-Public Use
  Company Number: US-MERCK-0406USA02222

PATIENT
  Age: 66 Year
  Sex: Female
  Weight: 76 kg

DRUGS (8)
  1. ASPIRIN [Concomitant]
     Route: 048
  2. LEXAPRO [Concomitant]
     Route: 048
  3. PROTONIX [Concomitant]
     Route: 048
  4. RYTHMOL [Concomitant]
     Route: 048
     Dates: end: 20040101
  5. ZOCOR [Suspect]
     Indication: BLOOD CHOLESTEROL INCREASED
     Route: 048
     Dates: end: 20040101
  6. ZOCOR [Suspect]
     Route: 048
  7. MICARDIS [Concomitant]
     Route: 048
  8. COUMADIN [Concomitant]
     Route: 048

REACTIONS (4)
  - ANGINA PECTORIS [None]
  - ARRHYTHMIA [None]
  - CORONARY ARTERY DISEASE [None]
  - DRUG INEFFECTIVE [None]
